FAERS Safety Report 21527250 (Version 1)
Quarter: 2022Q4

REPORT INFORMATION
  Report Type: Spontaneous
  Country: PT (occurrence: PT)
  Receive Date: 20221031
  Receipt Date: 20221031
  Transmission Date: 20230112
  Serious: Yes (Other)
  Sender: FDA-Public Use
  Company Number: None

PATIENT
  Age: 75 Year
  Sex: Male

DRUGS (5)
  1. ERLEADA [Suspect]
     Active Substance: APALUTAMIDE
     Indication: Prostate cancer
     Dosage: 240 MG (FOUR 60 MG TABLETS) AS A SINGLE DAILY ORAL DOSE
     Route: 048
     Dates: start: 20220603
  2. DENOSUMAB [Concomitant]
     Active Substance: DENOSUMAB
  3. LOSARTAN [Concomitant]
     Active Substance: LOSARTAN
  4. GLICLAZIDE [Concomitant]
     Active Substance: GLICLAZIDE
  5. ERGOCALCIFEROL [Concomitant]
     Active Substance: ERGOCALCIFEROL

REACTIONS (3)
  - Rash [Not Recovered/Not Resolved]
  - Oedema peripheral [Recovering/Resolving]
  - Erythema [Recovering/Resolving]

NARRATIVE: CASE EVENT DATE: 20220727
